FAERS Safety Report 5704939 (Version 3)
Quarter: 2014Q1

REPORT INFORMATION
  Report Type: Spontaneous
  Country: US (occurrence: US)
  Receive Date: 20041221
  Receipt Date: 20140328
  Transmission Date: 20141002
  Serious: Yes (Hospitalization)
  Sender: FDA-Public Use
  Company Number: 2004BI000874

PATIENT
  Age: 43 Year
  Sex: Female
  Weight: 70 kg

DRUGS (10)
  1. AVONEX [Suspect]
     Indication: MULTIPLE SCLEROSIS
     Route: 030
  2. AVONEX [Suspect]
     Indication: MULTIPLE SCLEROSIS
     Route: 030
     Dates: start: 19961204
  3. AVONEX [Suspect]
     Indication: MULTIPLE SCLEROSIS
     Route: 030
     Dates: start: 19971210, end: 20031112
  4. AVONEX [Suspect]
     Indication: MULTIPLE SCLEROSIS
     Route: 030
     Dates: start: 20050930
  5. AVONEX [Suspect]
     Indication: MULTIPLE SCLEROSIS
     Route: 030
     Dates: start: 20130322
  6. NEURONTIN [Concomitant]
  7. BACLOFEN [Concomitant]
  8. AMITRIPTYLINE [Concomitant]
  9. PROZAC [Concomitant]
  10. NOVANTRONE [Concomitant]
     Dates: start: 200112, end: 200203

REACTIONS (10)
  - Haematocrit decreased [Recovered/Resolved]
  - White blood cell count decreased [Recovered/Resolved]
  - Dyspnoea [Recovered/Resolved]
  - Pain in extremity [Unknown]
  - Intestinal operation [Recovered/Resolved]
  - Benign small intestinal neoplasm [Recovered/Resolved]
  - Postoperative wound infection [Recovered/Resolved]
  - Multiple sclerosis relapse [Not Recovered/Not Resolved]
  - Haematochezia [Recovered/Resolved]
  - Multiple sclerosis [Not Recovered/Not Resolved]
